FAERS Safety Report 6305701-6 (Version None)
Quarter: 2009Q3

REPORT INFORMATION
  Report Type: 
  Country: None (occurrence: None)
  Receive Date: 20090807
  Receipt Date: 20090724
  Transmission Date: 20100115
  Serious: Yes (Other)
  Sender: FDA-Public Use
  Company Number: US-1168635

PATIENT
  Age: 74 Year
  Sex: Female

DRUGS (6)
  1. TRIESENCE [Suspect]
     Indication: MACULAR OEDEMA
     Dosage: (4 MG INTRAVITREAL OD INTRAOCULAR)
     Route: 031
     Dates: start: 20080915, end: 20080915
  2. TRIESENCE [Suspect]
     Indication: MACULOPATHY
     Dosage: (4 MG INTRAVITREAL OD INTRAOCULAR)
     Route: 031
     Dates: start: 20080915, end: 20080915
  3. PILOCARPINE HYDROCHLORIDE [Concomitant]
  4. ALPHAGAN [Concomitant]
  5. TIMOPTIC [Concomitant]
  6. LUMIGAN [Concomitant]

REACTIONS (3)
  - ENDOPHTHALMITIS [None]
  - HYPOPYON [None]
  - VISUAL ACUITY REDUCED [None]
